FAERS Safety Report 8976361 (Version 2)
Quarter: 2012Q4

REPORT INFORMATION
  Report Type: 
  Country: US (occurrence: US)
  Receive Date: 20121220
  Receipt Date: 20121221
  Transmission Date: 20130627
  Serious: Yes (Hospitalization, Other)
  Sender: FDA-Public Use
  Company Number: US-NAPPMUNDI-USA-2012-0091995

PATIENT
  Age: 84 None
  Sex: Male
  Weight: 67.12 kg

DRUGS (30)
  1. BUTRANS [Suspect]
     Indication: BACK PAIN
     Dosage: 5 mcg/hr, UNK
     Route: 062
     Dates: start: 201208, end: 20120828
  2. CARBIDOPA AND LEVODOPA [Concomitant]
     Indication: PARKINSON^S DISEASE
     Dosage: 25 mg, qid
  3. COMTAN [Concomitant]
     Indication: PRODUCT USED FOR UNKNOWN INDICATION
  4. LODOSYN [Concomitant]
     Indication: PRODUCT USED FOR UNKNOWN INDICATION
     Dosage: 25 mg, daily
  5. NAMENDA [Concomitant]
     Indication: PRODUCT USED FOR UNKNOWN INDICATION
     Dosage: 5 mg, daily
  6. JANUVIA [Concomitant]
     Indication: PRODUCT USED FOR UNKNOWN INDICATION
     Dosage: 100 mg, single
  7. RAMIPRIL [Concomitant]
     Indication: PRODUCT USED FOR UNKNOWN INDICATION
     Dosage: 5 mg, bid
  8. COREG [Concomitant]
     Indication: PRODUCT USED FOR UNKNOWN INDICATION
     Dosage: 6.25 mg, bid
  9. CRESTOR [Concomitant]
     Indication: PRODUCT USED FOR UNKNOWN INDICATION
     Dosage: 20 mg, daily
  10. FINASTERIDE [Concomitant]
     Indication: PRODUCT USED FOR UNKNOWN INDICATION
     Dosage: 5 mg, daily
  11. FLUTAMIDE [Concomitant]
     Indication: PRODUCT USED FOR UNKNOWN INDICATION
     Dosage: four, 125mg capsules two times daily
  12. SEROQUEL [Concomitant]
     Indication: PRODUCT USED FOR UNKNOWN INDICATION
     Dosage: 25 mg, one tablet AM, two tablets hs
  13. ATIVAN [Concomitant]
     Indication: PRODUCT USED FOR UNKNOWN INDICATION
     Dosage: 0.5 mg, hs
  14. SINGULAIR [Concomitant]
     Indication: PRODUCT USED FOR UNKNOWN INDICATION
     Dosage: 10 mg, daily
  15. IPRATROPIUM                        /00391402/ [Concomitant]
     Indication: RESPIRATORY DISORDER
     Dosage: 1 puff, daily
  16. CENTRUM SILVER                     /01292501/ [Concomitant]
     Indication: PRODUCT USED FOR UNKNOWN INDICATION
     Dosage: 1 tablet, daily
  17. VITAMIN D3 [Concomitant]
     Indication: PRODUCT USED FOR UNKNOWN INDICATION
     Dosage: 1 tablet, daily
  18. MIRALAX                            /00754501/ [Concomitant]
     Indication: PRODUCT USED FOR UNKNOWN INDICATION
     Dosage: UNK, prn
  19. ASPIRIN [Concomitant]
  20. LOVENOX [Concomitant]
  21. GABAPENTIN [Concomitant]
  22. ATROVENT N [Concomitant]
  23. ALBUTEROL                          /00139501/ [Concomitant]
  24. KEPPRA [Concomitant]
  25. MIDODRINE [Concomitant]
  26. PROVIGIL [Concomitant]
  27. PROTONIX [Concomitant]
  28. ALTACE [Concomitant]
  29. PROSCAR [Concomitant]
  30. ULTRAM [Concomitant]

REACTIONS (7)
  - Accelerated hypertension [Unknown]
  - Pneumonia aspiration [Recovered/Resolved]
  - Hallucination [Recovered/Resolved]
  - Confusional state [Recovered/Resolved]
  - Agitation [Recovered/Resolved]
  - Pain [Unknown]
  - Urinary retention [Unknown]
